FAERS Safety Report 6755352-4 (Version None)
Quarter: 2010Q2

REPORT INFORMATION
  Report Type: 
  Country: None (occurrence: None)
  Receive Date: 20100604
  Receipt Date: 20100524
  Transmission Date: 20101027
  Serious: Yes (Other)
  Sender: FDA-Public Use
  Company Number: JP-PFIZER INC-2010065835

PATIENT
  Age: 80 Year
  Sex: Female

DRUGS (4)
  1. ALDACTONE [Suspect]
     Dosage: 25 MG, DAILY
     Route: 048
  2. LASIX [Concomitant]
  3. GLUCOBAY [Concomitant]
     Route: 048
  4. GLUFAST [Concomitant]
     Indication: DIABETES MELLITUS

REACTIONS (1)
  - BLOOD GLUCOSE INCREASED [None]
